FAERS Safety Report 7559146-1 (Version None)
Quarter: 2011Q2

REPORT INFORMATION
  Report Type: 
  Country: None (occurrence: None)
  Receive Date: 20110621
  Receipt Date: 20110615
  Transmission Date: 20111010
  Serious: Yes (Other)
  Sender: FDA-Public Use
  Company Number: JP-PFIZER INC-2011115701

PATIENT

DRUGS (1)
  1. TOLTERODINE TARTRATE [Suspect]
     Indication: STRESS URINARY INCONTINENCE
     Dosage: UNK
     Route: 048

REACTIONS (2)
  - HYPERTENSION [None]
  - CALCULUS URETERIC [None]
